FAERS Safety Report 21160245 (Version 1)
Quarter: 2022Q3

REPORT INFORMATION
  Report Type: Spontaneous
  Country: CA (occurrence: CA)
  Receive Date: 20220802
  Receipt Date: 20220802
  Transmission Date: 20221026
  Serious: Yes (Other)
  Sender: FDA-Public Use
  Company Number: None

PATIENT
  Age: 74 Year
  Sex: Female

DRUGS (5)
  1. METHOTREXATE [Suspect]
     Active Substance: METHOTREXATE
     Indication: Product used for unknown indication
     Dosage: 1 EVERY 1 WEEKS
     Route: 058
  2. INDOMETHACIN [Concomitant]
     Active Substance: INDOMETHACIN
  3. TOFACITINIB [Concomitant]
     Active Substance: TOFACITINIB
  4. TYLENOL [Concomitant]
     Active Substance: ACETAMINOPHEN
  5. METHOTREXATE [Suspect]
     Active Substance: METHOTREXATE
     Indication: Product used for unknown indication
     Dosage: 1 EVERY 1 WEEKS
     Route: 048

REACTIONS (5)
  - Arthritis [Recovered/Resolved]
  - Fungal infection [Recovered/Resolved]
  - Incorrect route of product administration [Unknown]
  - Infection [Recovered/Resolved]
  - Pain [Recovered/Resolved]
